FAERS Safety Report 6499082-5 (Version None)
Quarter: 2009Q4

REPORT INFORMATION
  Report Type: 
  Country: None (occurrence: None)
  Receive Date: 20091215
  Receipt Date: 20091211
  Transmission Date: 20100525
  Serious: Yes (Death, Other)
  Sender: FDA-Public Use
  Company Number: BE-WYE-H01096807

PATIENT
  Sex: Male

DRUGS (4)
  1. GEMTUZUMAB OZOGAMICIN [Suspect]
     Indication: ACUTE MYELOID LEUKAEMIA
     Dates: start: 20070914, end: 20070914
  2. GEMTUZUMAB OZOGAMICIN [Suspect]
     Dates: start: 20071019, end: 20071019
  3. GEMTUZUMAB OZOGAMICIN [Suspect]
     Dates: start: 20070921, end: 20070921
  4. PROLOPA [Suspect]
     Dosage: DOSE AND FREQUENCY NOT PROVIDED
     Dates: start: 20071025, end: 20071025

REACTIONS (4)
  - ESCHERICHIA SEPSIS [None]
  - HAEMATEMESIS [None]
  - STENOTROPHOMONAS SEPSIS [None]
  - THROMBOCYTOPENIA [None]
